FAERS Safety Report 8588698-8 (Version None)
Quarter: 2012Q3

REPORT INFORMATION
  Report Type: 
  Country: None (occurrence: None)
  Receive Date: 20120731
  Receipt Date: 20120720
  Transmission Date: 20120928
  Serious: Yes (Hospitalization)
  Sender: FDA-Public Use
  Company Number: DSA_58713_2012

PATIENT
  Sex: Female

DRUGS (8)
  1. LODINE [Concomitant]
  2. CEFTRIAXON [Suspect]
     Indication: SEPSIS
     Dosage: (1 G QD INTRAVENOUS (NOT OTHERWISE SPECIFIED))
     Route: 042
     Dates: start: 20120626, end: 20120702
  3. TRAMADOL HCL [Concomitant]
  4. FLAGYL [Suspect]
     Indication: SEPSIS
     Dosage: (DF)
     Dates: start: 20120626, end: 20120626
  5. ETANERCEPT (ETANERCEPT) [Suspect]
     Indication: RHEUMATOID ARTHRITIS
     Dosage: (DF SUBCUTANEOUS)
     Route: 058
     Dates: start: 20110901
  6. POTASSIUM CHLORIDE [Concomitant]
  7. ACETAMINOPHEN [Concomitant]
  8. PREDNISONE TAB [Concomitant]

REACTIONS (2)
  - SEPSIS [None]
  - AGRANULOCYTOSIS [None]
